FAERS Safety Report 7801808-2 (Version None)
Quarter: 2011Q4

REPORT INFORMATION
  Report Type: 
  Country: None (occurrence: None)
  Receive Date: 20111007
  Receipt Date: 20110926
  Transmission Date: 20120403
  Serious: Yes (Hospitalization)
  Sender: FDA-Public Use
  Company Number: AU-SANOFI-AVENTIS-2011SA062387

PATIENT
  Age: 45 Year
  Sex: Male

DRUGS (3)
  1. CABAZITAXEL [Suspect]
     Route: 042
     Dates: start: 20110906, end: 20110906
  2. CABAZITAXEL [Suspect]
     Indication: PROSTATE CANCER
     Route: 042
     Dates: start: 20110519, end: 20110519
  3. PREDNISONE [Suspect]
     Indication: PROSTATE CANCER

REACTIONS (1)
  - SPINAL CORD COMPRESSION [None]
